FAERS Safety Report 24533495 (Version 2)
Quarter: 2024Q4

REPORT INFORMATION
  Report Type: Spontaneous
  Country: FR (occurrence: FR)
  Receive Date: 20241022
  Receipt Date: 20241025
  Transmission Date: 20250115
  Serious: Yes (Other)
  Sender: PFIZER
  Company Number: FR-PFIZER INC-202400280292

PATIENT
  Age: 74 Year
  Sex: Female

DRUGS (2)
  1. ZITHROMAX [Suspect]
     Active Substance: AZITHROMYCIN DIHYDRATE
     Indication: COVID-19
     Dosage: 250 MG
     Dates: start: 20241016
  2. PRISTINAMYCIN [Concomitant]
     Active Substance: PRISTINAMYCIN

REACTIONS (6)
  - Nausea [Not Recovered/Not Resolved]
  - Renal pain [Not Recovered/Not Resolved]
  - Off label use [Unknown]
  - Hepatic pain [Not Recovered/Not Resolved]
  - Malaise [Unknown]
  - Agitation [Unknown]

NARRATIVE: CASE EVENT DATE: 20241016
